FAERS Safety Report 7062865-7 (Version None)
Quarter: 2010Q4

REPORT INFORMATION
  Report Type: 
  Country: None (occurrence: None)
  Receive Date: 20101026
  Receipt Date: 20101013
  Transmission Date: 20110411
  Serious: Yes (Hospitalization)
  Sender: FDA-Public Use
  Company Number: DE-AMGEN-QUU440642

PATIENT

DRUGS (2)
  1. ETANERCEPT [Suspect]
     Indication: RHEUMATOID ARTHRITIS
     Dosage: 50 MG, QWK
     Route: 058
     Dates: start: 20100125
  2. CORTICOSTEROIDS [Concomitant]
     Dosage: 5 MG, UNK

REACTIONS (4)
  - HAEMATOMA [None]
  - MONOPLEGIA [None]
  - MUSCLE HAEMORRHAGE [None]
  - THROMBOSIS [None]
